FAERS Safety Report 12713317 (Version 2)
Quarter: 2016Q4

REPORT INFORMATION
  Report Type: Spontaneous
  Country: DE (occurrence: DE)
  Receive Date: 20160902
  Receipt Date: 20161008
  Transmission Date: 20170207
  Serious: Yes (Life-Threatening)
  Sender: FDA-Public Use
  Company Number: DE-BAXTER-2016BAX044864

PATIENT
  Age: 80 Year
  Sex: Male
  Weight: 85 kg

DRUGS (8)
  1. MESNA. [Suspect]
     Active Substance: MESNA
     Indication: PROPHYLAXIS URINARY TRACT INFECTION
     Dosage: FIRST ADMINISTRATION
     Route: 042
  2. MESNA. [Suspect]
     Active Substance: MESNA
     Dosage: 400 MG IN 100 ML NACL 0.9%, SECOND ADMINISTRATION
     Route: 042
     Dates: start: 20160805, end: 20160805
  3. COTRIMOXAZOL [Concomitant]
     Active Substance: SULFAMETHOXAZOLE\TRIMETHOPRIM
     Indication: ANTIFUNGAL PROPHYLAXIS
     Dosage: 400/80 MG 3X PER WEEK (MONDAY, WEDNESDAY, FRIDAY) ALWAYS FOR 4 WEEKS AFTER CYCLOPHSPHAMIDE-PULSE
     Route: 065
  4. SODIUM CHLORIDE. [Suspect]
     Active Substance: SODIUM CHLORIDE
     Indication: MEDICATION DILUTION
     Dosage: FIRST ADMINISTRATION
     Route: 042
  5. SODIUM CHLORIDE. [Suspect]
     Active Substance: SODIUM CHLORIDE
     Dosage: SECOND ADMINISTRATION
     Route: 042
     Dates: start: 20160805, end: 20160805
  6. ENDOXAN 1G [Suspect]
     Active Substance: CYCLOPHOSPHAMIDE
     Indication: SJOGREN^S SYNDROME
     Dosage: PULSE THERAPY
     Route: 065
     Dates: start: 20160805
  7. PREDNISOLON [Concomitant]
     Active Substance: PREDNISOLONE
     Indication: SJOGREN^S SYNDROME
     Route: 065
  8. VITAMIN D3 [Concomitant]
     Active Substance: CHOLECALCIFEROL
     Indication: OSTEOPENIA
     Route: 065

REACTIONS (10)
  - Respiratory distress [Recovered/Resolved]
  - Dizziness [Unknown]
  - Dermatitis exfoliative [Recovered/Resolved]
  - Discomfort [Unknown]
  - Chills [Recovered/Resolved]
  - Tachyarrhythmia [Recovered/Resolved]
  - Hypertension [Recovered/Resolved]
  - Hyperthermia [Recovered/Resolved]
  - Cardiovascular disorder [Unknown]
  - Disturbance in attention [Unknown]

NARRATIVE: CASE EVENT DATE: 20160805
